FAERS Safety Report 9154517 (Version 1)
Quarter: 2013Q1

REPORT INFORMATION
  Report Type: Report from Study
  Country: US (occurrence: US)
  Receive Date: 20130311
  Receipt Date: 20130311
  Transmission Date: 20140127
  Serious: No
  Sender: FDA-Public Use
  Company Number: US-ABBOTT-12P-163-0914189-00

PATIENT
  Sex: Female
  Weight: 54.93 kg

DRUGS (2)
  1. LUPRON DEPOT 11.25 MG [Suspect]
     Indication: ENDOMETRIOSIS
     Dates: start: 20111212
  2. LUPRON DEPOT 11.25 MG [Suspect]
     Indication: ADENOMYOSIS

REACTIONS (2)
  - Abdominal distension [Unknown]
  - Pain [Unknown]
